FAERS Safety Report 4950645-5 (Version None)
Quarter: 2006Q1

REPORT INFORMATION
  Report Type: 
  Country: None (occurrence: None)
  Receive Date: 20060322
  Receipt Date: 20050316
  Transmission Date: 20060701
  Serious: Yes (Hospitalization, Other)
  Sender: FDA-Public Use
  Company Number: US-MERCK-0503USA03280

PATIENT
  Age: 46 Year
  Sex: Male

DRUGS (15)
  1. VIOXX [Suspect]
     Indication: ARTHRALGIA
     Route: 048
     Dates: start: 20020101, end: 20040801
  2. VIOXX [Suspect]
     Indication: BACK PAIN
     Route: 048
     Dates: start: 20020101, end: 20040801
  3. VICODIN [Concomitant]
     Route: 048
  4. ASPIRIN [Concomitant]
     Indication: PROPHYLAXIS
     Route: 048
     Dates: start: 19950101
  5. ISOSORBIDE DINITRATE [Concomitant]
     Route: 048
  6. VALSARTAN [Concomitant]
     Indication: CARDIAC DISORDER
     Route: 048
     Dates: start: 19950101, end: 20040101
  7. METOPROLOL SUCCINATE [Concomitant]
     Indication: HYPERTENSION
     Route: 048
     Dates: start: 19950101
  8. CLONIDINE [Concomitant]
     Route: 048
  9. BUMETANIDE [Concomitant]
     Indication: HYPERTENSION
     Route: 048
     Dates: start: 20040401
  10. BUMETANIDE [Concomitant]
     Indication: CARDIAC DISORDER
     Route: 048
     Dates: start: 20040401
  11. SPIRONOLACTONE [Concomitant]
     Route: 048
     Dates: start: 20030101
  12. ROSUVASTATIN CALCIUM [Concomitant]
     Route: 048
  13. GABAPENTIN [Concomitant]
     Route: 048
  14. CYCLOBENZAPRINE HYDROCHLORIDE [Concomitant]
     Route: 048
  15. TEMAZEPAM [Concomitant]
     Route: 048

REACTIONS (19)
  - ABDOMINAL PAIN [None]
  - ANXIETY [None]
  - BALANCE DISORDER [None]
  - BLOOD MAGNESIUM DECREASED [None]
  - BLOOD POTASSIUM DECREASED [None]
  - BLOOD PRESSURE INADEQUATELY CONTROLLED [None]
  - CARDIAC FAILURE CONGESTIVE [None]
  - CARDIOMYOPATHY [None]
  - CELLULITIS [None]
  - CEREBROVASCULAR ACCIDENT [None]
  - CONVULSION [None]
  - DIABETES MELLITUS NON-INSULIN-DEPENDENT [None]
  - HEADACHE [None]
  - HEAT EXHAUSTION [None]
  - HYPERHIDROSIS [None]
  - HYPOAESTHESIA [None]
  - MEDICATION ERROR [None]
  - MUSCULOSKELETAL CHEST PAIN [None]
  - TREMOR [None]
